FAERS Safety Report 25748153 (Version 2)
Quarter: 2025Q3

REPORT INFORMATION
  Report Type: Report from Study
  Country: US (occurrence: US)
  Receive Date: 20250901
  Receipt Date: 20250904
  Transmission Date: 20251021
  Serious: Yes (Other)
  Sender: ABBVIE
  Company Number: US-ABBVIE-6434693

PATIENT
  Age: 26 Year
  Sex: Female

DRUGS (1)
  1. HUMIRA [Suspect]
     Active Substance: ADALIMUMAB
     Indication: Product used for unknown indication
     Route: 058
     Dates: start: 20250708

REACTIONS (8)
  - Noninfective encephalitis [Recovering/Resolving]
  - Burning sensation [Unknown]
  - Adverse drug reaction [Recovering/Resolving]
  - Vomiting [Recovering/Resolving]
  - Pain [Recovering/Resolving]
  - Gait inability [Recovering/Resolving]
  - Loss of personal independence in daily activities [Recovering/Resolving]
  - Impaired driving ability [Recovering/Resolving]

NARRATIVE: CASE EVENT DATE: 20250101
